FAERS Safety Report 16767421 (Version 1)
Quarter: 2019Q4

REPORT INFORMATION
  Report Type: Spontaneous
  Country: US (occurrence: US)
  Receive Date: 20190903
  Receipt Date: 20190903
  Transmission Date: 20200122
  Serious: Yes (Hospitalization)
  Sender: FDA-Public Use
  Company Number: None

PATIENT
  Age: 59 Year
  Sex: Male

DRUGS (4)
  1. VALIUM 10MG TAB [Concomitant]
  2. CYCLOBENZAPRINE TABLET 10MG [Concomitant]
  3. EPCLUSA [Suspect]
     Active Substance: SOFOSBUVIR\VELPATASVIR
     Indication: CHRONIC HEPATITIS C
     Route: 048
     Dates: start: 20190708
  4. MORPHINE SULFATE 30MG TAB [Concomitant]

REACTIONS (2)
  - Cholelithiasis [None]
  - Therapy cessation [None]

NARRATIVE: CASE EVENT DATE: 20190725
